FAERS Safety Report 8552237-8 (Version None)
Quarter: 2012Q3

REPORT INFORMATION
  Report Type: 
  Country: None (occurrence: None)
  Receive Date: 20120731
  Receipt Date: 20120730
  Transmission Date: 20120928
  Serious: Yes (Hospitalization)
  Sender: FDA-Public Use
  Company Number: ES-SHIRE-SPV1-2012-00629

PATIENT
  Age: 82 Year
  Sex: Male

DRUGS (4)
  1. MESALAMINE [Suspect]
     Indication: CROHN'S DISEASE
     Dosage: 1.2 G, 1X/DAY:QD
     Route: 048
     Dates: start: 20110701, end: 20110922
  2. LYRICA [Concomitant]
     Indication: NEURALGIA
     Dosage: 75 MG, 1X/DAY:QD
     Route: 065
  3. IRBESARTAN AND HIDROCLOROTIAZIDA [Concomitant]
     Indication: PRODUCT USED FOR UNKNOWN INDICATION
     Dosage: UNK, UNKNOWN
     Route: 065
  4. ASPIRIN [Concomitant]
     Indication: PRODUCT USED FOR UNKNOWN INDICATION
     Dosage: 100 MG, 1X/DAY:QD
     Route: 048

REACTIONS (2)
  - AGRANULOCYTOSIS [None]
  - OFF LABEL USE [None]
